FAERS Safety Report 5400528-1 (Version None)
Quarter: 2007Q3

REPORT INFORMATION
  Report Type: 
  Country: None (occurrence: None)
  Receive Date: 20070730
  Receipt Date: 20070724
  Transmission Date: 20080115
  Serious: Yes (Hospitalization)
  Sender: FDA-Public Use
  Company Number: US-GENENTECH-241609

PATIENT
  Sex: Female
  Weight: 71.655 kg

DRUGS (7)
  1. BEVACIZUMAB [Suspect]
     Indication: SQUAMOUS CELL CARCINOMA
     Dosage: 15 MG/KG, Q3W
     Dates: start: 20070223, end: 20070509
  2. ERLOTINIB [Suspect]
     Indication: SQUAMOUS CELL CARCINOMA
     Dosage: 150 MG, QD
     Route: 048
     Dates: end: 20070502
  3. TAXOL [Suspect]
     Indication: SQUAMOUS CELL CARCINOMA
     Dosage: 50 MG/M2, 1/WEEK
  4. TAXOL [Suspect]
     Dosage: 200 MG/M2, DAYS 1+22
     Dates: start: 20070223, end: 20070316
  5. CARBOPLATIN [Suspect]
     Indication: SQUAMOUS CELL CARCINOMA
     Dosage: 6 AUC, DAYS 1+22
     Dates: start: 20070223
  6. FLUOROURACIL [Suspect]
     Indication: SQUAMOUS CELL CARCINOMA
     Dosage: 200 MG/M2, UNK
     Route: 042
     Dates: start: 20070223
  7. RADIATION [Suspect]
     Indication: SQUAMOUS CELL CARCINOMA

REACTIONS (2)
  - OESOPHAGITIS [None]
  - PYREXIA [None]
